FAERS Safety Report 22102346 (Version 1)
Quarter: 2023Q1

REPORT INFORMATION
  Report Type: Other
  Country: CN (occurrence: CN)
  Receive Date: 20230316
  Receipt Date: 20230316
  Transmission Date: 20230418
  Serious: Yes (Other)
  Sender: FDA-Public Use
  Company Number: CN-GE HEALTHCARE-2023CSU001636

PATIENT
  Age: 76 Year
  Sex: Female
  Weight: 53 kg

DRUGS (3)
  1. OMNIPAQUE [Suspect]
     Active Substance: IOHEXOL
     Indication: Angiocardiogram
     Dosage: 30 GM, SINGLE
     Route: 042
     Dates: start: 20230207, end: 20230207
  2. OMNIPAQUE [Suspect]
     Active Substance: IOHEXOL
     Indication: Arteriosclerosis coronary artery
  3. METOPROLOL [Suspect]
     Active Substance: METOPROLOL
     Indication: Arteriosclerosis coronary artery
     Dosage: 12.5 MG, BID
     Route: 048
     Dates: start: 20230205, end: 20230207

REACTIONS (3)
  - Nodal rhythm [Recovering/Resolving]
  - Arrhythmia [Recovering/Resolving]
  - Dizziness [Recovering/Resolving]

NARRATIVE: CASE EVENT DATE: 20230207
